FAERS Safety Report 8187610-3 (Version None)
Quarter: 2012Q1

REPORT INFORMATION
  Report Type: 
  Country: None (occurrence: None)
  Receive Date: 20120301
  Receipt Date: 20120203
  Transmission Date: 20120608
  Serious: Yes (Hospitalization)
  Sender: FDA-Public Use
  Company Number: 01113462A

PATIENT
  Sex: Male

DRUGS (1)
  1. TRIVEREX MALE ENHANCEMENT (TXGEN) [Suspect]
     Indication: MEDICAL DIET
     Dosage: THREE TABLETS DAILY
     Dates: start: 20120109

REACTIONS (4)
  - WEIGHT INCREASED [None]
  - FEELING ABNORMAL [None]
  - OEDEMA PERIPHERAL [None]
  - NAUSEA [None]
